FAERS Safety Report 10674988 (Version 7)
Quarter: 2015Q4

REPORT INFORMATION
  Report Type: Report from Study
  Country: US (occurrence: US)
  Receive Date: 20141224
  Receipt Date: 20151110
  Transmission Date: 20160304
  Serious: Yes (Other)
  Sender: FDA-Public Use
  Company Number: US-SA-2014SA124590

PATIENT
  Age: 73 Year
  Sex: Male

DRUGS (2)
  1. AUBAGIO [Suspect]
     Active Substance: TERIFLUNOMIDE
     Indication: MULTIPLE SCLEROSIS
     Route: 048
     Dates: start: 20140820
  2. AUBAGIO [Suspect]
     Active Substance: TERIFLUNOMIDE
     Indication: MULTIPLE SCLEROSIS
     Route: 048

REACTIONS (22)
  - Visual impairment [Unknown]
  - Increased appetite [Unknown]
  - Drooling [Unknown]
  - Gait disturbance [Not Recovered/Not Resolved]
  - Tinnitus [Unknown]
  - Memory impairment [Not Recovered/Not Resolved]
  - Muscular weakness [Unknown]
  - Headache [Unknown]
  - Condition aggravated [Not Recovered/Not Resolved]
  - Aphasia [Not Recovered/Not Resolved]
  - Drug dose omission [Unknown]
  - Alopecia [Recovering/Resolving]
  - Pollakiuria [Not Recovered/Not Resolved]
  - Sensory disturbance [Not Recovered/Not Resolved]
  - Pain in extremity [Not Recovered/Not Resolved]
  - Hypoaesthesia [Unknown]
  - Hypersomnia [Unknown]
  - Hallucination [Not Recovered/Not Resolved]
  - Disturbance in attention [Unknown]
  - Dysstasia [Unknown]
  - Fall [Unknown]
  - Balance disorder [Unknown]

NARRATIVE: CASE EVENT DATE: 201409
